FAERS Safety Report 16985742 (Version 1)
Quarter: 2020Q3

REPORT INFORMATION
  Report Type: Spontaneous
  Country: AU (occurrence: PG)
  Receive Date: 20191101
  Receipt Date: 20191101
  Transmission Date: 20201104
  Serious: Yes (Other)
  Sender: FDA-Public Use
  Company Number: NVSC2019PG021591

PATIENT
  Sex: Female

DRUGS (2)
  1. PIPERAQUINE. [Suspect]
     Active Substance: PIPERAQUINE
     Indication: MALARIA PROPHYLAXIS
     Dosage: 960 MG, QD
     Route: 065
  2. AZITHROMYCIN ANHYDROUS. [Suspect]
     Active Substance: AZITHROMYCIN ANHYDROUS
     Indication: MALARIA PROPHYLAXIS
     Dosage: 1 G, TID
     Route: 065

REACTIONS (3)
  - Stillbirth [Unknown]
  - Product use in unapproved indication [Unknown]
  - Maternal exposure during pregnancy [Unknown]
